FAERS Safety Report 12142833 (Version 4)
Quarter: 2016Q2

REPORT INFORMATION
  Report Type: Report from Study
  Country: DE (occurrence: KR)
  Receive Date: 20160303
  Receipt Date: 20160503
  Transmission Date: 20160815
  Serious: Yes (Hospitalization, Other)
  Sender: FDA-Public Use
  Company Number: DE-ACTELION-A-US2016-132308

PATIENT
  Age: 31 Year
  Sex: Female

DRUGS (5)
  1. VENTAVIS [Suspect]
     Active Substance: ILOPROST
     Indication: PULMONARY ARTERIAL HYPERTENSION
     Dosage: UNK
     Route: 055
     Dates: start: 20150702
  2. PARIET [Concomitant]
     Active Substance: RABEPRAZOLE SODIUM
  3. VOLIBRIS [Concomitant]
     Active Substance: AMBRISENTAN
  4. DICHLOZID [Concomitant]
  5. WARFARIN [Concomitant]
     Active Substance: WARFARIN

REACTIONS (17)
  - Dizziness [Not Recovered/Not Resolved]
  - Erythema [Recovering/Resolving]
  - Nasal ulcer [Recovering/Resolving]
  - Dizziness [Unknown]
  - Back pain [Recovering/Resolving]
  - Cardiomegaly [Recovering/Resolving]
  - Myalgia [Unknown]
  - Poor quality sleep [Unknown]
  - Hypoaesthesia [Unknown]
  - Vomiting [Unknown]
  - Dyspnoea [Recovering/Resolving]
  - Chest pain [Not Recovered/Not Resolved]
  - Headache [Unknown]
  - Nausea [Unknown]
  - Peripheral swelling [Not Recovered/Not Resolved]
  - Dyspnoea exertional [Recovered/Resolved]
  - Menstruation irregular [Recovering/Resolving]

NARRATIVE: CASE EVENT DATE: 201509
